FAERS Safety Report 5071249-2 (Version None)
Quarter: 2006Q3

REPORT INFORMATION
  Report Type: 
  Country: None (occurrence: None)
  Receive Date: 20060804
  Receipt Date: 20060301
  Transmission Date: 20061208
  Serious: Yes (Other)
  Sender: FDA-Public Use
  Company Number: 2006GB00368

PATIENT
  Age: 16 Year
  Sex: Male
  Weight: 60.2 kg

DRUGS (4)
  1. QUETIAPINE FUMARATE [Suspect]
     Indication: PSYCHOTIC DISORDER
     Route: 048
  2. QUETIAPINE FUMARATE [Suspect]
     Route: 048
  3. QUETIAPINE FUMARATE [Suspect]
     Route: 048
     Dates: end: 20060101
  4. EPILIM [Concomitant]
     Indication: EPILEPSY
     Route: 048
     Dates: start: 20040101

REACTIONS (1)
  - NEUTROPENIA [None]
